FAERS Safety Report 21873776 (Version 1)
Quarter: 2023Q1

REPORT INFORMATION
  Report Type: Report from Study
  Country: AT (occurrence: AT)
  Receive Date: 20230117
  Receipt Date: 20230117
  Transmission Date: 20230418
  Serious: Yes (Hospitalization)
  Sender: FDA-Public Use
  Company Number: AT-ROCHE-3222791

PATIENT
  Age: 32 Year
  Sex: Female
  Weight: 62 kg

DRUGS (18)
  1. LETROZOLE [Suspect]
     Active Substance: LETROZOLE
     Indication: HER2 positive breast cancer
     Dosage: 2.5 MILLIGRAM, QD (MOST RECENT DOSE PRIOR TO AE)
     Route: 048
     Dates: start: 20180108
  2. DOCETAXEL [Suspect]
     Active Substance: DOCETAXEL
     Indication: HER2 positive breast cancer
     Dosage: 75 MILLIGRAM/SQ. METER, Q3W (MOST RECENT DOSE)
     Route: 042
     Dates: start: 20170621
  3. TRASTUZUMAB [Suspect]
     Active Substance: TRASTUZUMAB
     Indication: HER2 positive breast cancer
     Dosage: 8 MILLIGRAM/KILOGRAM, QD (MOST RECENT DOSE PRIOR)
     Route: 042
     Dates: start: 20170621, end: 20170621
  4. PERTUZUMAB [Suspect]
     Active Substance: PERTUZUMAB
     Indication: HER2 positive breast cancer
     Dosage: 840 MILLIGRAM, Q3W MOST RECENT DOSE PRIOR TO THE)
     Route: 042
     Dates: start: 20170621, end: 20170621
  5. LAPATINIB [Suspect]
     Active Substance: LAPATINIB
     Indication: HER2 positive breast cancer
     Dosage: 250 MILLIGRAM, QD (MOST RECENT DOSE PRIOR TO AE)
     Route: 048
     Dates: start: 20201028
  6. EXEMESTANE [Suspect]
     Active Substance: EXEMESTANE
     Indication: HER2 positive breast cancer
     Dosage: 25 MILLIGRAM, QD
     Route: 048
     Dates: start: 20200120
  7. DENOSUMAB [Suspect]
     Active Substance: DENOSUMAB
     Indication: HER2 positive breast cancer
     Dosage: 120 MILLIGRAM, MONTHLY (4 WEEKS)
     Route: 058
     Dates: start: 20170621
  8. GOSERELIN [Suspect]
     Active Substance: GOSERELIN
     Indication: HER2 positive breast cancer
     Dosage: 3.6 MILLIGRAM, MONTHLY (4 WEEK)
     Route: 058
     Dates: start: 20180108
  9. ZOLADEX [Concomitant]
     Active Substance: GOSERELIN ACETATE
     Dosage: ONGOING = CHECKED
     Route: 065
     Dates: start: 20180129
  10. ZOFRAN [Concomitant]
     Active Substance: ONDANSETRON HYDROCHLORIDE
     Dosage: ONGOING = NOT CHECKED
     Route: 065
     Dates: start: 20180115
  11. ZOFRAN [Concomitant]
     Active Substance: ONDANSETRON HYDROCHLORIDE
     Dosage: UNK, ONGOING = NOT CHECKED
     Route: 065
     Dates: start: 20170621, end: 20201006
  12. ESOMEPRAZOLE [Concomitant]
     Active Substance: ESOMEPRAZOLE
     Dosage: UNK, ONGOING = CHECKED
     Route: 065
     Dates: start: 20191230
  13. LEVETIRACETAM [Concomitant]
     Active Substance: LEVETIRACETAM
     Dosage: UNK, ONGOING = CHECKED
     Route: 065
     Dates: start: 20200102
  14. NOVALGIN (METAMIZOLE SODIUM) [Concomitant]
     Active Substance: METAMIZOLE SODIUM
     Dosage: UNK, ONGOING = CHECKED
     Route: 065
     Dates: start: 20180515
  15. ESOMEPRAZOLE [Concomitant]
     Active Substance: ESOMEPRAZOLE
     Dosage: UNK, ONGOING = CHECKED
     Route: 065
     Dates: start: 20170621
  16. CALCIUM CARBONATE\CHOLECALCIFEROL [Concomitant]
     Active Substance: CALCIUM CARBONATE\CHOLECALCIFEROL
     Dosage: UNK, ONGOING = CHECKED
     Route: 065
     Dates: start: 20171025
  17. LOPERAMIDE HYDROCHLORIDE [Concomitant]
     Active Substance: LOPERAMIDE HYDROCHLORIDE
     Dosage: UNK, ONGOING = CHECKED
     Route: 065
     Dates: start: 20201028
  18. LIPEGFILGRASTIM [Concomitant]
     Active Substance: LIPEGFILGRASTIM
     Dosage: UNK, ONGOING = NOT CHECKED
     Route: 065
     Dates: start: 20200120, end: 20201006

REACTIONS (1)
  - Syncope [Recovered/Resolved]

NARRATIVE: CASE EVENT DATE: 20201013
